FAERS Safety Report 8057325-0 (Version None)
Quarter: 2012Q1

REPORT INFORMATION
  Report Type: 
  Country: None (occurrence: None)
  Receive Date: 20120119
  Receipt Date: 20120115
  Transmission Date: 20120608
  Serious: Yes (Other)
  Sender: FDA-Public Use
  Company Number: US-PFIZER INC-2012011522

PATIENT
  Sex: Male

DRUGS (4)
  1. ALLEGRA [Concomitant]
     Dosage: UNK
  2. VIAGRA [Suspect]
     Dosage: UNK
  3. LUNESTA [Concomitant]
     Dosage: UNK
  4. COCAINE [Concomitant]
     Dosage: UNK

REACTIONS (1)
  - PENIS DISORDER [None]
